FAERS Safety Report 8029627-5 (Version None)
Quarter: 2012Q1

REPORT INFORMATION
  Report Type: 
  Country: None (occurrence: None)
  Receive Date: 20120109
  Receipt Date: 20120103
  Transmission Date: 20120608
  Serious: Yes (Hospitalization)
  Sender: FDA-Public Use
  Company Number: US-PFIZER INC-2011289284

PATIENT
  Sex: Female

DRUGS (3)
  1. METHYLPREDNISOLONE [Suspect]
     Dosage: UNK
  2. FELDENE [Concomitant]
     Dosage: UNK
  3. ETANERCEPT [Concomitant]
     Indication: RHEUMATOID ARTHRITIS
     Dosage: 25 MG, 2X/WEEK
     Dates: start: 20030901

REACTIONS (1)
  - OSTEOPOROSIS [None]
